FAERS Safety Report 18728782 (Version 6)
Quarter: 2021Q2

REPORT INFORMATION
  Report Type: Report from Study
  Country: US (occurrence: US)
  Receive Date: 20210112
  Receipt Date: 20210506
  Transmission Date: 20210717
  Serious: Yes (Other)
  Sender: FDA-Public Use
  Company Number: US-GLAXOSMITHKLINE-US2021GSK000737

PATIENT
  Age: 65 Year
  Sex: Male
  Weight: 79.8 kg

DRUGS (1)
  1. BELANTAMAB MAFODOTIN. [Suspect]
     Active Substance: BELANTAMAB MAFODOTIN
     Indication: PLASMA CELL MYELOMA
     Dosage: CYC
     Route: 042
     Dates: end: 20201021

REACTIONS (2)
  - Visual acuity reduced [Unknown]
  - Visual impairment [Recovered/Resolved]

NARRATIVE: CASE EVENT DATE: 20201218
